FAERS Safety Report 15639861 (Version 1)
Quarter: 2018Q4

REPORT INFORMATION
  Report Type: Spontaneous
  Country: AT (occurrence: AT)
  Receive Date: 20181120
  Receipt Date: 20181120
  Transmission Date: 20190205
  Serious: Yes (Hospitalization)
  Sender: FDA-Public Use
  Company Number: AT-NOVOPROD-632485

PATIENT
  Age: 50 Year
  Sex: Female

DRUGS (4)
  1. OLEOVIT                            /00056001/ [Concomitant]
     Dosage: 50 PER WEEK
     Route: 065
  2. CANDESARCOMP [Concomitant]
     Dosage: 1-0-0
     Route: 065
  3. VICTOZA [Suspect]
     Active Substance: LIRAGLUTIDE
     Indication: PRODUCT USED FOR UNKNOWN INDICATION
     Dosage: UNK
     Route: 065
  4. DIABETEX [Concomitant]
     Dosage: 1-0-1
     Route: 065

REACTIONS (3)
  - Necrotising panniculitis [Unknown]
  - Injection site pain [Unknown]
  - Chills [Unknown]
